FAERS Safety Report 16733513 (Version 1)
Quarter: 2019Q3

REPORT INFORMATION
  Report Type: Spontaneous
  Country: GB (occurrence: GB)
  Receive Date: 20190823
  Receipt Date: 20190823
  Transmission Date: 20191005
  Serious: Yes (Hospitalization)
  Sender: FDA-Public Use
  Company Number: GB-ROCHE-2389446

PATIENT
  Age: 49 Year
  Sex: Male

DRUGS (13)
  1. LONGTEC [Concomitant]
     Active Substance: OXYCODONE HYDROCHLORIDE
  2. PREGABALIN. [Concomitant]
     Active Substance: PREGABALIN
  3. NEBIVOLOL. [Concomitant]
     Active Substance: NEBIVOLOL
  4. RAMIPRIL. [Concomitant]
     Active Substance: RAMIPRIL
  5. ACETYLSALICYLIC ACID [Concomitant]
     Active Substance: ASPIRIN
  6. TOCILIZUMAB. [Suspect]
     Active Substance: TOCILIZUMAB
     Indication: RHEUMATOID ARTHRITIS
  7. METHOTREXATE. [Concomitant]
     Active Substance: METHOTREXATE
  8. NAPROXEN. [Concomitant]
     Active Substance: NAPROXEN
  9. TOCILIZUMAB. [Suspect]
     Active Substance: TOCILIZUMAB
     Indication: RHEUMATOID ARTHRITIS
     Route: 058
     Dates: start: 20160907, end: 20190201
  10. TOCILIZUMAB. [Suspect]
     Active Substance: TOCILIZUMAB
     Indication: RHEUMATOID ARTHRITIS
     Route: 042
     Dates: start: 20150319
  11. RANITIDINE. [Concomitant]
     Active Substance: RANITIDINE
  12. PREDNISOLONE. [Concomitant]
     Active Substance: PREDNISOLONE
  13. ADCAL [CALCIUM CARBONATE] [Concomitant]

REACTIONS (1)
  - Diverticulitis [Recovering/Resolving]

NARRATIVE: CASE EVENT DATE: 20190301
